FAERS Safety Report 8155078-9 (Version None)
Quarter: 2012Q1

REPORT INFORMATION
  Report Type: 
  Country: None (occurrence: None)
  Receive Date: 20120221
  Receipt Date: 20120217
  Transmission Date: 20120608
  Serious: No
  Sender: FDA-Public Use
  Company Number: US-PFIZER INC-2012043617

PATIENT
  Sex: Female
  Weight: 65.76 kg

DRUGS (3)
  1. IBUPROFEN [Concomitant]
     Dosage: 800 MG, 2X/DAY
  2. LYRICA [Suspect]
     Indication: NERVE INJURY
     Dosage: 75 MG, 2X/DAY
     Route: 048
     Dates: start: 20120216
  3. ACETYLSALICYLIC ACID [Concomitant]
     Dosage: 325 MG, UNK

REACTIONS (4)
  - FEELING ABNORMAL [None]
  - JAW DISORDER [None]
  - FEELING DRUNK [None]
  - EUPHORIC MOOD [None]
